FAERS Safety Report 20740496 (Version 2)
Quarter: 2022Q2

REPORT INFORMATION
  Report Type: Report from Study
  Country: US (occurrence: US)
  Receive Date: 20220422
  Receipt Date: 20220601
  Transmission Date: 20220720
  Serious: No
  Sender: FDA-Public Use
  Company Number: US-NOVARTISTESTPH-NVSC2022US092831

PATIENT
  Sex: Female

DRUGS (4)
  1. KISQALI [Suspect]
     Active Substance: RIBOCICLIB
     Indication: Product used for unknown indication
     Dosage: 200 MG, OTHER  (3 TABLETS BY MOUTH DAILY FOR 21 DAYS FOLLOWED BY 7 DAYS OFF)
     Route: 048
     Dates: start: 20171103, end: 20181010
  2. KISQALI FEMARA CO-PACK [Suspect]
     Active Substance: LETROZOLE\RIBOCICLIB
     Indication: Product used for unknown indication
     Dosage: 600 MG, OTHER (3 KISQALI TABLETS (600MG) BY MOUTH DAILY FOR 21 DAYS FOLLOWED BY 7 DAYS OFF AND 1 FEM
     Route: 048
     Dates: start: 20181010, end: 20220209
  3. KISQALI FEMARA CO-PACK [Suspect]
     Active Substance: LETROZOLE\RIBOCICLIB
     Indication: Product used for unknown indication
     Dosage: 600 MG, OTHER  (3 KISQALI TABLETS (600MG) BY MOUTH DAILY FOR 21 DAYS FOLLOWED BY 7 DAYS OFF AND 1 FE
     Route: 048
     Dates: start: 20181010, end: 20220209
  4. PIQRAY [Suspect]
     Active Substance: ALPELISIB
     Indication: Product used for unknown indication
     Dosage: 250 MG, QD
     Route: 048
     Dates: start: 20220222

REACTIONS (1)
  - Hyperglycaemia [Unknown]
